FAERS Safety Report 19389546 (Version 1)
Quarter: 2021Q2

REPORT INFORMATION
  Report Type: Spontaneous
  Country: IT (occurrence: IT)
  Receive Date: 20210608
  Receipt Date: 20210608
  Transmission Date: 20210717
  Serious: Yes (Hospitalization)
  Sender: FDA-Public Use
  Company Number: IT-TEVA-2021-IT-1919926

PATIENT
  Age: 45 Year
  Sex: Male

DRUGS (3)
  1. ROSUVASTATIN. [Suspect]
     Active Substance: ROSUVASTATIN
     Indication: TYPE IIA HYPERLIPIDAEMIA
     Dosage: 10 MILLIGRAM DAILY; THE MAN HAD BEEN RECEIVING TREATMENT ROSUVASTATIN SINCE THREE YEARS BEFORE
     Route: 065
  2. COCAINE [Interacting]
     Active Substance: COCAINE
     Indication: DRUG ABUSE
     Route: 065
  3. HEROIN [Interacting]
     Active Substance: DIAMORPHINE
     Indication: DRUG ABUSE
     Route: 065

REACTIONS (4)
  - Drug abuse [Unknown]
  - Drug interaction [Unknown]
  - Rhabdomyolysis [Recovering/Resolving]
  - Acute kidney injury [Recovering/Resolving]
